FAERS Safety Report 16956432 (Version 6)
Quarter: 2021Q1

REPORT INFORMATION
  Report Type: Report from Study
  Country: GB (occurrence: GB)
  Receive Date: 20191024
  Receipt Date: 20210210
  Transmission Date: 20210419
  Serious: Yes (Death, Hospitalization)
  Sender: FDA-Public Use
  Company Number: GB-ROCHE-2405155

PATIENT
  Age: 69 Year
  Sex: Male
  Weight: 73.7 kg

DRUGS (70)
  1. BISOPROLOL [Concomitant]
     Active Substance: BISOPROLOL
     Indication: ATRIAL FIBRILLATION
     Dates: end: 20190711
  2. CHOLECALCIFEROL [Concomitant]
     Active Substance: CHOLECALCIFEROL
     Dates: start: 20190905, end: 20190912
  3. FLUOXETINE [Concomitant]
     Active Substance: FLUOXETINE HYDROCHLORIDE
     Indication: DEPRESSION
  4. AMOXICILLIN. [Concomitant]
     Active Substance: AMOXICILLIN
     Indication: LOWER RESPIRATORY TRACT INFECTION
     Dates: start: 20190822, end: 20190828
  5. LANSOPRAZOLE. [Concomitant]
     Active Substance: LANSOPRAZOLE
     Dates: start: 20190822, end: 20190822
  6. LANSOPRAZOLE. [Concomitant]
     Active Substance: LANSOPRAZOLE
     Dates: start: 20190905
  7. PARACETAMOL [Concomitant]
     Active Substance: ACETAMINOPHEN
     Dates: start: 20190731, end: 20190731
  8. IBUPROFEN. [Concomitant]
     Active Substance: IBUPROFEN
     Dates: start: 20190730, end: 20190822
  9. DOMPERIDONE [Concomitant]
     Active Substance: DOMPERIDONE
     Dates: start: 20190905, end: 20190908
  10. SODIUM CHLORIDE. [Concomitant]
     Active Substance: SODIUM CHLORIDE
     Dates: start: 20190905, end: 20190905
  11. SALINE [Concomitant]
     Active Substance: SODIUM CHLORIDE
     Indication: DEHYDRATION
     Dates: start: 20190712, end: 20190712
  12. SALINE [Concomitant]
     Active Substance: SODIUM CHLORIDE
     Dates: start: 20190905, end: 20190907
  13. PARACETAMOL [Concomitant]
     Active Substance: ACETAMINOPHEN
     Dates: start: 20190801
  14. SODIUM LACTATE COMPOUND [Concomitant]
     Active Substance: CALCIUM CHLORIDE\POTASSIUM CHLORIDE\SODIUM CHLORIDE\SODIUM LACTATE
     Dates: start: 20190907, end: 20190908
  15. PROHANCE [Concomitant]
     Active Substance: GADOTERIDOL
     Dates: start: 20190903, end: 20190904
  16. MAGNESIUM SULPHATE [Concomitant]
     Active Substance: MAGNESIUM SULFATE
     Indication: HYPOMAGNESAEMIA
     Dosage: IN NACL 0.9 %
     Dates: start: 20190905, end: 20190905
  17. MAGNESIUM GLYCEROPHOSPHATE [Concomitant]
     Active Substance: MAGNESIUM GLYCEROPHOSPHATE
     Dosage: LIQUID
     Route: 048
     Dates: start: 20190909, end: 20190909
  18. HYOSCINE HYDROBROMIDE [Concomitant]
     Active Substance: SCOPOLAMINE HYDROBROMIDE
     Dosage: FOR RESPIRATORY SECRETIONS
     Dates: start: 20190912
  19. DIHYDROCODEINE [Concomitant]
     Active Substance: DIHYDROCODEINE
     Indication: PAIN
     Dates: start: 201906, end: 20190822
  20. BISOPROLOL [Concomitant]
     Active Substance: BISOPROLOL
     Dates: start: 20190822, end: 20190822
  21. CHOLECALCIFEROL [Concomitant]
     Active Substance: CHOLECALCIFEROL
     Indication: VITAMIN D DECREASED
     Dates: start: 20190801, end: 20190801
  22. DIGOXIN. [Concomitant]
     Active Substance: DIGOXIN
     Indication: ATRIAL FIBRILLATION
  23. RANITIDINE. [Concomitant]
     Active Substance: RANITIDINE
     Indication: ABDOMINAL PAIN UPPER
     Dates: start: 20190712, end: 20190712
  24. SALINE [Concomitant]
     Active Substance: SODIUM CHLORIDE
     Dates: start: 20190910, end: 20190911
  25. AMOXICILLIN. [Concomitant]
     Active Substance: AMOXICILLIN
     Indication: MUSCULOSKELETAL CHEST PAIN
     Dates: start: 20190905, end: 20190905
  26. PARACETAMOL [Concomitant]
     Active Substance: ACETAMINOPHEN
     Indication: PAIN
     Dates: start: 20190730, end: 20190822
  27. PARACETAMOL [Concomitant]
     Active Substance: ACETAMINOPHEN
     Dates: start: 20190912
  28. IBUPROFEN. [Concomitant]
     Active Substance: IBUPROFEN
     Dates: start: 20190731, end: 20190731
  29. HYDROCORTISONE SODIUM SUCCINATE [Concomitant]
     Active Substance: HYDROCORTISONE SODIUM SUCCINATE
     Indication: ANAPHYLACTIC REACTION
     Dates: start: 20190731, end: 20190731
  30. SOLU?MEDROL [Concomitant]
     Active Substance: METHYLPREDNISOLONE SODIUM SUCCINATE
     Indication: PNEUMONITIS
     Dosage: IN NACL 0.9%
     Dates: start: 20190907, end: 20190911
  31. HALOPERIDOL. [Concomitant]
     Active Substance: HALOPERIDOL
     Indication: DELIRIUM
     Dates: start: 20190908
  32. ATEZOLIZUMAB. [Suspect]
     Active Substance: ATEZOLIZUMAB
     Indication: NEOPLASM
     Dosage: DATE OF MOST RECENT DOSE OF THE ATEZOLIZUMAB PRIOR TO THE ONSET OF THE ADVERSE EVENT: 30/JUL/2019 AT
     Route: 041
     Dates: start: 20190711
  33. DIHYDROCODEINE [Concomitant]
     Active Substance: DIHYDROCODEINE
     Dates: start: 20190905, end: 20190908
  34. PARACETAMOL [Concomitant]
     Active Substance: ACETAMINOPHEN
     Dates: start: 20190905, end: 20190912
  35. SODIUM LACTATE COMPOUND [Concomitant]
     Active Substance: CALCIUM CHLORIDE\POTASSIUM CHLORIDE\SODIUM CHLORIDE\SODIUM LACTATE
     Indication: HYPOTENSION
     Dosage: (HARTMANN^S)INFUSION
     Dates: start: 20190905, end: 20190906
  36. OMNIPAQUE [Concomitant]
     Active Substance: IOHEXOL
     Dates: start: 20190819, end: 20190820
  37. PREDNISOLONE. [Concomitant]
     Active Substance: PREDNISOLONE
     Indication: DYSPNOEA
     Dates: start: 20190905, end: 20190907
  38. METOPROLOL. [Concomitant]
     Active Substance: METOPROLOL
     Dates: start: 20190906, end: 20190909
  39. MAGNESIUM SULPHATE [Concomitant]
     Active Substance: MAGNESIUM SULFATE
     Indication: ATRIAL FIBRILLATION
     Dates: start: 20190910, end: 20190912
  40. MOVICOL [Concomitant]
     Active Substance: POLYETHYLENE GLYCOL 3350\POTASSIUM CHLORIDE\SODIUM BICARBONATE\SODIUM CHLORIDE
     Dates: start: 20190912, end: 20190912
  41. FUROSEMIDE. [Concomitant]
     Active Substance: FUROSEMIDE
     Indication: DYSPNOEA
     Dates: start: 20190909, end: 20190912
  42. SODIUM CHLORIDE. [Concomitant]
     Active Substance: SODIUM CHLORIDE
     Dates: start: 20190905, end: 20190905
  43. CHOLECALCIFEROL [Concomitant]
     Active Substance: CHOLECALCIFEROL
     Dates: start: 20190821, end: 20190822
  44. RANITIDINE. [Concomitant]
     Active Substance: RANITIDINE
     Dates: start: 20190731, end: 20190905
  45. IBUPROFEN. [Concomitant]
     Active Substance: IBUPROFEN
     Dates: start: 20190905, end: 20190905
  46. SODIUM LACTATE COMPOUND [Concomitant]
     Active Substance: CALCIUM CHLORIDE\POTASSIUM CHLORIDE\SODIUM CHLORIDE\SODIUM LACTATE
     Indication: ATRIAL FIBRILLATION
     Dates: start: 20190731, end: 20190801
  47. PREGABALIN. [Concomitant]
     Active Substance: PREGABALIN
     Dates: start: 20190905, end: 20190912
  48. CLARITHROMYCIN. [Concomitant]
     Active Substance: CLARITHROMYCIN
     Indication: PNEUMONIA
     Dosage: WITH NACL 0.9%
     Dates: start: 20190905, end: 20190907
  49. METOPROLOL. [Concomitant]
     Active Substance: METOPROLOL
     Dates: start: 20190909
  50. MORPHINE [Concomitant]
     Active Substance: MORPHINE
     Dosage: MODIFIED RELEASE TABLET
     Dates: start: 20190912, end: 20190912
  51. SOLU?MEDROL [Concomitant]
     Active Substance: METHYLPREDNISOLONE SODIUM SUCCINATE
     Dates: start: 20190912, end: 20190912
  52. MOVICOL [Concomitant]
     Active Substance: POLYETHYLENE GLYCOL 3350\POTASSIUM CHLORIDE\SODIUM BICARBONATE\SODIUM CHLORIDE
     Indication: CONSTIPATION
     Dates: start: 20190908, end: 20190908
  53. COLECALCIFEROL [Concomitant]
     Active Substance: CHOLECALCIFEROL
     Indication: VITAMIN D DEFICIENCY
     Dates: start: 20190821, end: 20190822
  54. SODIUM CHLORIDE. [Concomitant]
     Active Substance: SODIUM CHLORIDE
     Dates: start: 20190910, end: 20190911
  55. SODIUM CHLORIDE. [Concomitant]
     Active Substance: SODIUM CHLORIDE
     Dates: start: 20190905, end: 20190907
  56. RO6874281 (FAP IL2V MAB) [Suspect]
     Active Substance: SIMLUKAFUSP ALFA
     Indication: NEOPLASM
     Dosage: DATE OF MOST RECENT DOSE OF THE RO6874281 PRIOR TO THE ONSET OF THE ADVERSE EVENT: 30/JUL/2019 AT 16
     Route: 042
     Dates: start: 20190711
  57. RIVAROXABAN [Concomitant]
     Active Substance: RIVAROXABAN
     Indication: ATRIAL FIBRILLATION
  58. LANSOPRAZOLE. [Concomitant]
     Active Substance: LANSOPRAZOLE
     Indication: ABDOMINAL PAIN UPPER
     Dosage: GASTRO?RESISTANT CAPSULE
     Dates: start: 20190713, end: 20190822
  59. LANSOPRAZOLE. [Concomitant]
     Active Substance: LANSOPRAZOLE
     Dates: start: 20190801, end: 20190801
  60. PARACETAMOL [Concomitant]
     Active Substance: ACETAMINOPHEN
     Dates: start: 20190822, end: 20190822
  61. IBUPROFEN. [Concomitant]
     Active Substance: IBUPROFEN
     Indication: PAIN
     Dates: start: 20190822, end: 20190822
  62. PREGABALIN. [Concomitant]
     Active Substance: PREGABALIN
     Indication: PAIN
     Dates: start: 20190801, end: 20190801
  63. PREGABALIN. [Concomitant]
     Active Substance: PREGABALIN
     Dates: start: 20190821, end: 20190822
  64. METOPROLOL. [Concomitant]
     Active Substance: METOPROLOL
     Indication: ATRIAL FIBRILLATION
     Dates: start: 20190905, end: 20190905
  65. MORPHINE [Concomitant]
     Active Substance: MORPHINE
     Dosage: MODIFIED RELEASE TABLET
     Dates: start: 20190907, end: 20190912
  66. DIHYDROCODEINE [Concomitant]
     Active Substance: DIHYDROCODEINE
     Dates: start: 20190731, end: 20190801
  67. AMOXICILLIN. [Concomitant]
     Active Substance: AMOXICILLIN
     Indication: PNEUMONIA
     Dates: start: 20190819, end: 20190822
  68. DOMPERIDONE [Concomitant]
     Active Substance: DOMPERIDONE
     Indication: NAUSEA
     Dates: start: 20190730, end: 20190822
  69. MAGNESIUM SULPHATE [Concomitant]
     Active Substance: MAGNESIUM SULFATE
     Dates: start: 20190715, end: 20190729
  70. SODIUM CHLORIDE. [Concomitant]
     Active Substance: SODIUM CHLORIDE
     Indication: HYPOMAGNESAEMIA
     Dates: start: 20190730, end: 20190730

REACTIONS (4)
  - Dyspnoea [Recovered/Resolved with Sequelae]
  - Atrial fibrillation [Not Recovered/Not Resolved]
  - Musculoskeletal chest pain [Recovered/Resolved]
  - Respiratory failure [Fatal]

NARRATIVE: CASE EVENT DATE: 20190820
